FAERS Safety Report 26129407 (Version 2)
Quarter: 2025Q4

REPORT INFORMATION
  Report Type: Spontaneous
  Country: JP (occurrence: JP)
  Receive Date: 20251208
  Receipt Date: 20251224
  Transmission Date: 20260118
  Serious: Yes (Other)
  Sender: ACCORD
  Company Number: JP-Accord-516543

PATIENT
  Age: 8 Decade
  Sex: Male
  Weight: 64 kg

DRUGS (9)
  1. OXALIPLATIN [Suspect]
     Active Substance: OXALIPLATIN
     Indication: Colon cancer
     Dosage: DAY 1; 1 COURSE FOR 21 DAYS; INFUSION TIME OF 2 HOURS
  2. BEVACIZUMAB [Concomitant]
     Active Substance: BEVACIZUMAB
     Indication: Colon cancer
     Dosage: DAY 1; 1 COURSE FOR 21 DAYS
  3. CAPECITABINE [Concomitant]
     Active Substance: CAPECITABINE
     Indication: Colon cancer
     Dosage: DAY 1-14; 1 COURSE FOR 21 DAYS
  4. GRANISETRON [Concomitant]
     Active Substance: GRANISETRON
     Indication: Product used for unknown indication
     Dosage: DAY 1
  5. DEXAMETHASONE [Concomitant]
     Active Substance: DEXAMETHASONE
     Indication: Product used for unknown indication
     Dosage: DAY 1
  6. SILODOSIN [Concomitant]
     Active Substance: SILODOSIN
     Indication: Product used for unknown indication
     Route: 048
  7. CAPECITABINE [Concomitant]
     Active Substance: CAPECITABINE
     Indication: Metastases to lymph nodes
     Dosage: DAY 1-14; 1 COURSE FOR 21 DAYS
  8. BEVACIZUMAB [Concomitant]
     Active Substance: BEVACIZUMAB
     Indication: Metastases to lymph nodes
     Dosage: DAY 1; 1 COURSE FOR 21 DAYS
  9. OXALIPLATIN [Suspect]
     Active Substance: OXALIPLATIN
     Indication: Metastases to lymph nodes
     Dosage: DAY 1; 1 COURSE FOR 21 DAYS; INFUSION TIME OF 2 HOURS

REACTIONS (2)
  - Urinary retention [Recovered/Resolved]
  - Neuropathy peripheral [Recovered/Resolved]
